FAERS Safety Report 10262118 (Version 1)
Quarter: 2014Q2

REPORT INFORMATION
  Report Type: Spontaneous
  Country: US (occurrence: US)
  Receive Date: 20140626
  Receipt Date: 20140626
  Transmission Date: 20141212
  Serious: Yes (Hospitalization)
  Sender: FDA-Public Use
  Company Number: US-GLAXOSMITHKLINE-A1077693A

PATIENT
  Age: 70 Year
  Sex: Female

DRUGS (5)
  1. ADVAIR [Suspect]
     Indication: CHRONIC OBSTRUCTIVE PULMONARY DISEASE
     Dosage: 1PUFF PER DAY
     Route: 055
  2. SPIRIVA [Concomitant]
  3. UNSPECIFIED MEDICATION [Concomitant]
  4. INDIGESTION MEDICATION [Concomitant]
  5. MONTELUKAST [Concomitant]

REACTIONS (4)
  - Pneumonia [Recovered/Resolved]
  - Underdose [Unknown]
  - Expired product administered [Unknown]
  - Investigation [Unknown]
